FAERS Safety Report 20628839 (Version 1)
Quarter: 2022Q1

REPORT INFORMATION
  Report Type: Spontaneous
  Country: US (occurrence: None)
  Receive Date: 20220323
  Receipt Date: 20220323
  Transmission Date: 20220423
  Serious: No
  Sender: FDA-Public Use
  Company Number: None

PATIENT
  Age: 71 Year
  Sex: Female
  Weight: 60.75 kg

DRUGS (4)
  1. .DELTA.8-TETRAHYDROCANNABINOL\HERBALS [Suspect]
     Active Substance: .DELTA.8-TETRAHYDROCANNABINOL\HERBALS
     Indication: Sleep disorder
     Dosage: OTHER QUANTITY : 1 GUMMY;?
     Route: 048
  2. .DELTA.8-TETRAHYDROCANNABINOL\HERBALS [Suspect]
     Active Substance: .DELTA.8-TETRAHYDROCANNABINOL\HERBALS
     Indication: Anxiety
  3. Immitrex [Concomitant]
  4. NEXIUM [Concomitant]
     Active Substance: ESOMEPRAZOLE MAGNESIUM

REACTIONS (6)
  - Nausea [None]
  - Disorientation [None]
  - Amnesia [None]
  - Dry mouth [None]
  - Paranoia [None]
  - Malaise [None]

NARRATIVE: CASE EVENT DATE: 20220322
